FAERS Safety Report 6329613-7 (Version None)
Quarter: 2009Q3

REPORT INFORMATION
  Report Type: 
  Country: None (occurrence: None)
  Receive Date: 20090826
  Receipt Date: 20090814
  Transmission Date: 20100115
  Serious: Yes (Hospitalization)
  Sender: FDA-Public Use
  Company Number: GB-GILEAD-E2B_00000381

PATIENT
  Sex: Female
  Weight: 86 kg

DRUGS (4)
  1. AMBRISENTAN [Suspect]
     Indication: PULMONARY ARTERIAL HYPERTENSION
     Route: 048
     Dates: start: 20090501, end: 20090603
  2. URSODIOL [Concomitant]
  3. FRUSEMIDE [Concomitant]
     Route: 048
  4. SPIRONOLACTONE [Concomitant]

REACTIONS (2)
  - DRUG INEFFECTIVE [None]
  - PULMONARY ARTERIAL HYPERTENSION [None]
